FAERS Safety Report 6288543-X (Version None)
Quarter: 2009Q3

REPORT INFORMATION
  Report Type: 
  Country: None (occurrence: None)
  Receive Date: 20090729
  Receipt Date: 20090717
  Transmission Date: 20100115
  Serious: Yes (Hospitalization, Disabling)
  Sender: FDA-Public Use
  Company Number: DE-SOLVAY-00309003556

PATIENT
  Age: 868 Month
  Sex: Female
  Weight: 44 kg

DRUGS (2)
  1. OMEBETA [Concomitant]
     Indication: GASTRITIS
     Dosage: DAILY DOSE: 1 DOSAGE FORM
     Route: 065
     Dates: start: 20080201
  2. CREON [Suspect]
     Indication: PANCREATITIS ACUTE
     Dosage: DAILY DOSE: 105000 LIPASEN, UNIT DOSE: 35000, FREQUENCY: THREE TIMES A DAY.
     Route: 065
     Dates: start: 20080201

REACTIONS (3)
  - ANORECTAL DISORDER [None]
  - CHOLANGITIS [None]
  - GLOSSODYNIA [None]
